FAERS Safety Report 9669368 (Version 1)
Quarter: 2013Q4

REPORT INFORMATION
  Report Type: Spontaneous
  Country: FR (occurrence: None)
  Receive Date: 20131101
  Receipt Date: 20131101
  Transmission Date: 20140711
  Serious: Yes (Hospitalization)
  Sender: FDA-Public Use
  Company Number: 1944161

PATIENT
  Age: 67 Year
  Sex: Female

DRUGS (5)
  1. CARBOPLATIN [Suspect]
     Indication: OVARIAN CANCER METASTATIC
     Route: 042
     Dates: start: 20120112, end: 20120112
  2. DEXAMETHASONE SODIUM PHOSPHATE [Suspect]
     Indication: PRODUCT USED FOR UNKNOWN INDICATION
     Route: 042
     Dates: start: 20120112, end: 20120112
  3. AVASTIN [Suspect]
     Indication: OVARIAN CANCER METASTATIC
     Route: 042
  4. GEMZAR [Concomitant]
  5. POLARMINE [Concomitant]

REACTIONS (6)
  - Malaise [None]
  - Dyspnoea [None]
  - Bronchospasm [None]
  - Tachycardia [None]
  - Rash erythematous [None]
  - Myoclonus [None]
